FAERS Safety Report 7994386-9 (Version None)
Quarter: 2011Q4

REPORT INFORMATION
  Report Type: 
  Country: None (occurrence: None)
  Receive Date: 20111220
  Receipt Date: 20100630
  Transmission Date: 20120403
  Serious: Yes (Death, Congenital Anomaly)
  Sender: FDA-Public Use
  Company Number: DE-UCBSA-014647

PATIENT
  Sex: Male
  Weight: 2.39 kg

DRUGS (7)
  1. KEPPRA [Suspect]
     Route: 064
  2. ZOLPINOX [Concomitant]
     Indication: SLEEP DISORDER
     Dosage: 10
     Route: 064
  3. SERTRALINE HYDROCHLORIDE [Concomitant]
     Indication: BORDERLINE PERSONALITY DISORDER
     Dosage: 100
     Route: 064
  4. CLONAZEPAM [Concomitant]
     Route: 064
  5. LAMOTRIGINE [Concomitant]
     Indication: EPILEPSY
     Route: 064
  6. LORAZEPAM [Concomitant]
     Route: 064
  7. DOMINAL [Concomitant]
     Dosage: 80
     Route: 064

REACTIONS (2)
  - MATERNAL EXPOSURE DURING PREGNANCY [None]
  - CONGENITAL CARDIOVASCULAR ANOMALY [None]
